FAERS Safety Report 10173389 (Version 3)
Quarter: 2014Q3

REPORT INFORMATION
  Report Type: Spontaneous
  Country: US (occurrence: US)
  Receive Date: 20140515
  Receipt Date: 20140808
  Transmission Date: 20150326
  Serious: Yes (Death, Other)
  Sender: FDA-Public Use
  Company Number: US-TEVA-480930USA

PATIENT
  Sex: Male

DRUGS (5)
  1. MS CONTIN [Concomitant]
     Active Substance: MORPHINE SULFATE
     Indication: PAIN
  2. SANCUSO [Concomitant]
     Active Substance: GRANISETRON
     Indication: NAUSEA
  3. VOLTAREN [Concomitant]
     Active Substance: DICLOFENAC SODIUM
     Indication: INFLAMMATION
  4. LIDODERM [Concomitant]
     Active Substance: LIDOCAINE
     Indication: PAIN
  5. FENTORA [Suspect]
     Active Substance: FENTANYL CITRATE
     Indication: BACK PAIN
     Route: 002
     Dates: start: 201101, end: 201311

REACTIONS (6)
  - Cardiac disorder [Unknown]
  - Prostate cancer [Unknown]
  - Coronary artery bypass [Unknown]
  - Death [Fatal]
  - Myocardial infarction [Unknown]
  - Off label use [Unknown]
